FAERS Safety Report 4472942-2 (Version None)
Quarter: 2004Q4

REPORT INFORMATION
  Report Type: 
  Country: None (occurrence: None)
  Receive Date: 20041013
  Receipt Date: 20030911
  Transmission Date: 20050328
  Serious: Yes (Other)
  Sender: FDA-Public Use
  Company Number: JP-MERCK-0309USA01683

PATIENT
  Age: 53 Year
  Sex: Male

DRUGS (14)
  1. [THERAPY UNSPECIFIED] [Concomitant]
     Indication: HYPOAESTHESIA
     Route: 048
     Dates: start: 19960122, end: 19980512
  2. AMITRIPTYLINE HYDROCHLORIDE [Concomitant]
     Indication: DEPRESSION
     Route: 048
     Dates: start: 19990101, end: 20031201
  3. AMOXAPINE [Concomitant]
     Indication: DEPRESSION
     Route: 065
     Dates: start: 19990101, end: 20031201
  4. BROTIZOLAM [Concomitant]
     Indication: DEPRESSION
     Route: 048
     Dates: start: 19990101, end: 20031201
  5. CLOXAZOLAM [Concomitant]
     Indication: DEPRESSION
     Route: 065
     Dates: start: 19990101, end: 20031201
  6. FLORINEF [Concomitant]
     Indication: HYPOTENSION
     Route: 048
     Dates: start: 19951211, end: 19970701
  7. FLUNITRAZEPAM [Concomitant]
     Indication: DEPRESSION
     Route: 065
     Dates: start: 19990101, end: 20031201
  8. IMIPRAMINE HYDROCHLORIDE [Concomitant]
     Indication: DEPRESSION
     Route: 048
     Dates: start: 19990101, end: 20031201
  9. CRIXIVAN [Suspect]
     Indication: HIV INFECTION
     Route: 048
     Dates: start: 19970426, end: 19980930
  10. LAMIVUDINE [Concomitant]
     Indication: HIV INFECTION
     Route: 048
     Dates: start: 19970426
  11. NELFINAVIR MESYLATE [Suspect]
     Indication: HIV INFECTION
     Route: 048
     Dates: start: 19981001, end: 19990506
  12. NELFINAVIR MESYLATE [Suspect]
     Route: 048
     Dates: start: 19990507, end: 20040224
  13. BAKTAR [Concomitant]
     Indication: INFECTION PROPHYLAXIS
     Route: 048
     Dates: start: 19930713, end: 19980714
  14. ZIDOVUDINE [Concomitant]
     Indication: HIV INFECTION
     Route: 048
     Dates: start: 19950324

REACTIONS (3)
  - CALCULUS URINARY [None]
  - HEPATIC FUNCTION ABNORMAL [None]
  - RENAL ATROPHY [None]
